FAERS Safety Report 13383148 (Version 2)
Quarter: 2017Q2

REPORT INFORMATION
  Report Type: Spontaneous
  Country: US (occurrence: US)
  Receive Date: 20170329
  Receipt Date: 20170423
  Transmission Date: 20170830
  Serious: No
  Sender: FDA-Public Use
  Company Number: US-009507513-1702USA012138

PATIENT
  Age: 21 Year
  Sex: Female
  Weight: 102.4 kg

DRUGS (1)
  1. NEXPLANON [Suspect]
     Active Substance: ETONOGESTREL
     Indication: CONTRACEPTION
     Dosage: 3 YEAR IMPLANT, ON THE LEFT ARM
     Route: 059
     Dates: start: 201609

REACTIONS (3)
  - Vaginal haemorrhage [Not Recovered/Not Resolved]
  - Migration of implanted drug [Not Recovered/Not Resolved]
  - Hypoaesthesia [Not Recovered/Not Resolved]

NARRATIVE: CASE EVENT DATE: 201701
